FAERS Safety Report 13595195 (Version 2)
Quarter: 2018Q2

REPORT INFORMATION
  Report Type: Spontaneous
  Country: US (occurrence: US)
  Receive Date: 20170531
  Receipt Date: 20180611
  Transmission Date: 20180711
  Serious: No
  Sender: FDA-Public Use
  Company Number: US-TEVA-747556ACC

PATIENT
  Age: 24 Year
  Sex: Female

DRUGS (1)
  1. VESTURA [Suspect]
     Active Substance: DROSPIRENONE\ETHINYL ESTRADIOL
     Indication: CONTRACEPTION
     Dosage: DOSE STRENGTH:  3/0.02MG

REACTIONS (5)
  - Aggression [Recovered/Resolved]
  - Drug ineffective [Unknown]
  - Product formulation issue [Unknown]
  - Depressed mood [Recovered/Resolved]
  - Emotional disorder [Recovered/Resolved]

NARRATIVE: CASE EVENT DATE: 20170220
